FAERS Safety Report 19815332 (Version 1)
Quarter: 2021Q3

REPORT INFORMATION
  Report Type: Spontaneous
  Country: US (occurrence: US)
  Receive Date: 20210910
  Receipt Date: 20210910
  Transmission Date: 20211014
  Serious: Yes (Hospitalization)
  Sender: FDA-Public Use
  Company Number: None

PATIENT
  Age: 82 Year
  Sex: Female
  Weight: 54 kg

DRUGS (1)
  1. VALACYCLOVIR HCL [Suspect]
     Active Substance: VALACYCLOVIR HYDROCHLORIDE
     Indication: HERPES ZOSTER
     Dosage: ?          QUANTITY:2 TABLET(S);?
     Route: 048
     Dates: start: 20210822, end: 20210824

REACTIONS (8)
  - Herpes zoster [None]
  - Confusional state [None]
  - Nausea [None]
  - Vomiting [None]
  - Visual impairment [None]
  - Suicidal behaviour [None]
  - Hallucination [None]
  - Depression [None]

NARRATIVE: CASE EVENT DATE: 20210824
